FAERS Safety Report 18925865 (Version 1)
Quarter: 2021Q1

REPORT INFORMATION
  Report Type: Spontaneous
  Country: PK (occurrence: PK)
  Receive Date: 20210223
  Receipt Date: 20210223
  Transmission Date: 20210420
  Serious: Yes (Other)
  Sender: FDA-Public Use
  Company Number: PK-GILEAD-2021-0517535

PATIENT
  Age: 49 Year
  Sex: Female

DRUGS (3)
  1. VIREAD [Suspect]
     Active Substance: TENOFOVIR DISOPROXIL FUMARATE
     Indication: HIV INFECTION
     Dosage: UNK
     Route: 065
  2. EFAVIRENZ. [Concomitant]
     Active Substance: EFAVIRENZ
     Dosage: UNK
  3. 3TC [Concomitant]
     Active Substance: LAMIVUDINE
     Dosage: UNK

REACTIONS (2)
  - HIV-associated neurocognitive disorder [Recovering/Resolving]
  - CSF HIV escape syndrome [Recovering/Resolving]
